FAERS Safety Report 9645760 (Version 2)
Quarter: 2013Q4

REPORT INFORMATION
  Report Type: Spontaneous
  Country: US (occurrence: US)
  Receive Date: 20131025
  Receipt Date: 20131029
  Transmission Date: 20140711
  Serious: No
  Sender: FDA-Public Use
  Company Number: US-009507513-1310USA010395

PATIENT
  Age: 18 Year
  Sex: Female

DRUGS (6)
  1. MIRALAX [Suspect]
     Indication: CONSTIPATION
     Dosage: 8.5 G, QD
     Route: 048
     Dates: start: 2012
  2. MIRALAX [Suspect]
     Dosage: 8.5 G, ONCE
     Route: 048
     Dates: start: 20121008
  3. MIRALAX [Suspect]
     Dosage: 17 G, ONCE
     Route: 048
     Dates: start: 20121009
  4. MIRALAX [Suspect]
     Dosage: UNK, QD
     Route: 048
  5. LORATADINE [Concomitant]
     Indication: PRODUCT USED FOR UNKNOWN INDICATION
     Dosage: UNK, UNKNOWN
  6. OMEPRAZOLE [Concomitant]
     Indication: PRODUCT USED FOR UNKNOWN INDICATION
     Dosage: UNK, UNKNOWN

REACTIONS (6)
  - Chest pain [Recovered/Resolved]
  - Back pain [Recovered/Resolved]
  - Condition aggravated [Unknown]
  - Product odour abnormal [Unknown]
  - Underdose [Unknown]
  - Incorrect drug administration duration [Unknown]
